FAERS Safety Report 7138996-X (Version None)
Quarter: 2010Q4

REPORT INFORMATION
  Report Type: 
  Country: None (occurrence: None)
  Receive Date: 20101206
  Receipt Date: 20101130
  Transmission Date: 20110411
  Serious: Yes (Death)
  Sender: FDA-Public Use
  Company Number: A0883510A

PATIENT
  Age: 47 Year
  Sex: Female

DRUGS (7)
  1. WELLBUTRIN SR [Suspect]
     Indication: DEPRESSION
     Dosage: 150MG TWICE PER DAY
     Route: 048
  2. ZOVIRAX [Suspect]
     Dosage: 400MG TWICE PER DAY
     Route: 048
  3. XANAX [Concomitant]
  4. AMBIEN CR [Concomitant]
  5. OXYCODONE HCL [Concomitant]
  6. PEGASYS [Concomitant]
  7. COPEGUS [Concomitant]

REACTIONS (1)
  - DEATH [None]
